FAERS Safety Report 25920637 (Version 1)
Quarter: 2025Q4

REPORT INFORMATION
  Report Type: Spontaneous
  Country: EU (occurrence: EU)
  Receive Date: 20251014
  Receipt Date: 20251014
  Transmission Date: 20260118
  Serious: Yes (Hospitalization, Disabling, Other)
  Sender: PFIZER
  Company Number: None

PATIENT
  Age: 71 Year
  Sex: Female
  Weight: 82.6 kg

DRUGS (23)
  1. AXITINIB [Suspect]
     Active Substance: AXITINIB
     Indication: Clear cell renal cell carcinoma
     Dosage: 5 MG, 2X/DAY, EVERY 12 HOURS
     Route: 048
     Dates: start: 20241227, end: 20250425
  2. AXITINIB [Suspect]
     Active Substance: AXITINIB
     Dosage: 5 MG, 2X/DAY, EVERY 12 HOURS
     Route: 048
     Dates: start: 20250708, end: 20250729
  3. AXITINIB [Suspect]
     Active Substance: AXITINIB
     Dosage: 3 MG, 2X/DAY, EVERY 12 HOURS
     Route: 048
     Dates: start: 20250729, end: 20250905
  4. AXITINIB [Suspect]
     Active Substance: AXITINIB
     Dosage: 3 MG, 2X/DAY, EVERY 12 HOURS
     Route: 048
     Dates: start: 20250913
  5. KEYTRUDA [Suspect]
     Active Substance: PEMBROLIZUMAB
     Indication: Clear cell renal cell carcinoma
     Dosage: 200 MG, CYCLIC, CYCLE 1
     Route: 042
     Dates: start: 20241227, end: 20241227
  6. KEYTRUDA [Suspect]
     Active Substance: PEMBROLIZUMAB
     Dosage: 200 MG, CYCLIC, CYCLE 2
     Route: 042
     Dates: start: 20250117, end: 20250117
  7. KEYTRUDA [Suspect]
     Active Substance: PEMBROLIZUMAB
     Dosage: 200 MG, CYCLIC, CYCLE 3
     Route: 042
     Dates: start: 20250207, end: 20250207
  8. KEYTRUDA [Suspect]
     Active Substance: PEMBROLIZUMAB
     Dosage: 200 MG, CYCLIC, CYCLE 4
     Route: 042
     Dates: start: 20250304, end: 20250304
  9. KEYTRUDA [Suspect]
     Active Substance: PEMBROLIZUMAB
     Dosage: 200 MG, CYCLIC, CYCLE 5
     Route: 042
     Dates: start: 20250325, end: 20250325
  10. KEYTRUDA [Suspect]
     Active Substance: PEMBROLIZUMAB
     Dosage: 200 MG, CYCLIC, CYCLE 6
     Route: 042
     Dates: start: 20250415, end: 20250415
  11. KEYTRUDA [Suspect]
     Active Substance: PEMBROLIZUMAB
     Dosage: 200 MG, CYCLIC, CYCLE 7
     Route: 042
     Dates: start: 20250729, end: 20250729
  12. KEYTRUDA [Suspect]
     Active Substance: PEMBROLIZUMAB
     Dosage: 200 MG, CYCLIC, CYCLE 8
     Route: 042
     Dates: start: 20250819, end: 20250819
  13. KEYTRUDA [Suspect]
     Active Substance: PEMBROLIZUMAB
     Dosage: 200 MG, CYCLIC, CYCLE 9
     Route: 042
     Dates: start: 20250909, end: 20250909
  14. KEYTRUDA [Suspect]
     Active Substance: PEMBROLIZUMAB
     Dosage: 200 MG, CYCLIC, CYCLE 10
     Route: 042
     Dates: start: 20250930, end: 20250930
  15. METFORMIN [Concomitant]
     Active Substance: METFORMIN HYDROCHLORIDE
     Indication: Type 2 diabetes mellitus
     Dosage: 500 MG, 1X/DAY
     Route: 048
  16. EZETIMIBE [Concomitant]
     Active Substance: EZETIMIBE
     Indication: Dyslipidaemia
     Dosage: 10 MG, 1X/DAY
     Route: 048
  17. FLUOXETINE HYDROCHLORIDE [Concomitant]
     Active Substance: FLUOXETINE HYDROCHLORIDE
     Indication: Schizophrenia
     Dosage: 40 MG, 1X/DAY
     Route: 048
  18. ENALAPRIL MALEATE\LERCANIDIPINE HYDROCHLORIDE [Concomitant]
     Active Substance: ENALAPRIL MALEATE\LERCANIDIPINE HYDROCHLORIDE
     Indication: Hypertension
     Dosage: 1 DF, 1X/DAY
     Route: 048
  19. FENOFIBRATE [Concomitant]
     Active Substance: FENOFIBRATE
     Indication: Dyslipidaemia
     Dosage: 160 MG, 1X/DAY
     Route: 048
  20. ASCORBIC ACID\FERROUS SULFATE [Concomitant]
     Active Substance: ASCORBIC ACID\FERROUS SULFATE
     Indication: Mineral supplementation
     Dosage: 2 DF, 1X/DAY
     Route: 048
  21. LEUCOVORIN [Concomitant]
     Active Substance: LEUCOVORIN\LEUCOVORIN CALCIUM
     Indication: Vitamin supplementation
     Dosage: 5 MG, 1X/DAY
     Route: 048
  22. ABILIFY [Concomitant]
     Active Substance: ARIPIPRAZOLE
     Indication: Schizophrenia
     Dosage: 30 MG, 1X/DAY
     Route: 048
  23. TRIHEXYPHENIDYL HYDROCHLORIDE [Concomitant]
     Active Substance: TRIHEXYPHENIDYL HYDROCHLORIDE
     Indication: Parkinsonism
     Dosage: 5 MG, 1X/DAY
     Route: 048

REACTIONS (3)
  - Renal tubular necrosis [Recovered/Resolved]
  - Thyroiditis [Recovered/Resolved with Sequelae]
  - Palmar-plantar erythrodysaesthesia syndrome [Recovered/Resolved]

NARRATIVE: CASE EVENT DATE: 20250303
